FAERS Safety Report 9515376 (Version 1)
Quarter: 2013Q3

REPORT INFORMATION
  Report Type: Spontaneous
  Country: US (occurrence: None)
  Receive Date: 20130909
  Receipt Date: 20130909
  Transmission Date: 20140515
  Serious: Yes (Other)
  Sender: FDA-Public Use
  Company Number: NZ-20130010

PATIENT
  Age: 44 Year
  Sex: Female

DRUGS (1)
  1. DOTAREM [Suspect]
     Indication: NUCLEAR MAGNETIC RESONANCE IMAGING BRAIN
     Dosage: 20 ML (20 ML, 1 IN 1 D) INTRAVENOUS (NOT OTHERWISE SPECIFIED)?
     Dates: start: 20130821, end: 20130821

REACTIONS (6)
  - Nausea [None]
  - Dysphagia [None]
  - Paraesthesia oral [None]
  - Eye pruritus [None]
  - Pruritus [None]
  - Urticaria [None]
